FAERS Safety Report 20369918 (Version 1)
Quarter: 2022Q1

REPORT INFORMATION
  Report Type: Spontaneous
  Country: CN (occurrence: CN)
  Receive Date: 20220124
  Receipt Date: 20220124
  Transmission Date: 20220423
  Serious: Yes (Hospitalization)
  Sender: FDA-Public Use
  Company Number: CN-PFIZER INC-202200056301

PATIENT
  Age: 54 Year
  Sex: Male
  Weight: 101 kg

DRUGS (2)
  1. FRAGMIN [Suspect]
     Active Substance: DALTEPARIN SODIUM
     Indication: End stage renal disease
     Dosage: 5000 IU, 1X/DAY
     Route: 058
     Dates: start: 20211212, end: 20211221
  2. FRAGMIN [Suspect]
     Active Substance: DALTEPARIN SODIUM
     Indication: Anticoagulant therapy

REACTIONS (3)
  - Coagulopathy [Recovering/Resolving]
  - Vessel puncture site haemorrhage [Recovering/Resolving]
  - Extravasation blood [Recovering/Resolving]

NARRATIVE: CASE EVENT DATE: 20211220
